FAERS Safety Report 8903653 (Version 1)
Quarter: 2012Q4

REPORT INFORMATION
  Report Type: 
  Country: US (occurrence: US)
  Receive Date: 20121113
  Receipt Date: 20121113
  Transmission Date: 20130627
  Serious: No
  Sender: FDA-Public Use
  Company Number: US-PFIZER INC-2012281278

PATIENT
  Age: 67 Year
  Sex: Male
  Weight: 81.63 kg

DRUGS (5)
  1. ALPRAZOLAM [Suspect]
     Indication: ANXIETY
     Dosage: 1 mg, 3x/day
     Dates: end: 20121104
  2. ALPRAZOLAM [Suspect]
     Indication: PANIC DISORDER
  3. ALPRAZOLAM [Suspect]
     Indication: ANXIETY
     Dosage: 1 mg, 3x/day
     Dates: start: 20121105
  4. ALPRAZOLAM [Suspect]
     Indication: PANIC ATTACK
  5. SERTRALINE HYDROCHLORIDE [Concomitant]
     Indication: DEPRESSION
     Dosage: 100 mg, daily

REACTIONS (3)
  - Pain in extremity [Not Recovered/Not Resolved]
  - Muscle spasms [Not Recovered/Not Resolved]
  - Discomfort [Not Recovered/Not Resolved]
